FAERS Safety Report 7781189-3 (Version None)
Quarter: 2011Q3

REPORT INFORMATION
  Report Type: 
  Country: None (occurrence: None)
  Receive Date: 20110927
  Receipt Date: 20110920
  Transmission Date: 20111222
  Serious: Yes (Other)
  Sender: FDA-Public Use
  Company Number: HU-UCBSA-041706

PATIENT
  Sex: Female

DRUGS (6)
  1. VIMPAT [Suspect]
     Route: 048
     Dates: start: 20110712, end: 20110713
  2. CONVULEX [Concomitant]
     Indication: EPILEPSY
     Route: 048
  3. CLONAZEPAM [Concomitant]
     Indication: EPILEPSY
     Route: 048
     Dates: end: 20110705
  4. CLONAZEPAM [Concomitant]
     Dates: start: 20110713
  5. VIMPAT [Suspect]
     Indication: EPILEPSY
     Route: 048
     Dates: start: 20110706, end: 20110712
  6. DIAZEPAM [Concomitant]

REACTIONS (6)
  - MUSCLE SPASMS [None]
  - FATIGUE [None]
  - WEIGHT DECREASED [None]
  - DYSPHAGIA [None]
  - TREMOR [None]
  - CONVULSION [None]
